FAERS Safety Report 6601256-7 (Version None)
Quarter: 2010Q1

REPORT INFORMATION
  Report Type: 
  Country: None (occurrence: None)
  Receive Date: 20100217
  Receipt Date: 20100211
  Transmission Date: 20100710
  Serious: Yes (Death)
  Sender: FDA-Public Use
  Company Number: B0592805A

PATIENT
  Age: 25 Year
  Sex: Female

DRUGS (3)
  1. ZANAMIVIR (FORMULATION UNKNOWN) (ZANAMIVIR) [Suspect]
     Indication: H1N1 INFLUENZA
     Dosage: 20 MCG/TWICE PER DAY/INHALED
     Route: 055
     Dates: start: 20090902, end: 20090904
  2. OSELTAMIVIR PHOSPHATE [Suspect]
     Dosage: ORAL
     Route: 048
  3. DEXAMETHASONE [Suspect]
     Dosage: INTRAVENOUS
     Route: 042

REACTIONS (5)
  - DEVICE MALFUNCTION [None]
  - DEVICE OCCLUSION [None]
  - DRUG EXPOSURE DURING PREGNANCY [None]
  - PNEUMOTHORAX [None]
  - RESPIRATORY FAILURE [None]
